FAERS Safety Report 11253667 (Version 1)
Quarter: 2015Q3

REPORT INFORMATION
  Report Type: Spontaneous
  Country: US (occurrence: None)
  Receive Date: 20150707
  Receipt Date: 20150707
  Transmission Date: 20151125
  Serious: No
  Sender: FDA-Public Use
  Company Number: None

PATIENT
  Age: 31 Year
  Sex: Female

DRUGS (2)
  1. PARAGARD T 380A [Suspect]
     Active Substance: COPPER
     Dates: start: 20150305, end: 20150705
  2. PARAGARD T 380A [Concomitant]
     Active Substance: COPPER

REACTIONS (2)
  - Abdominal distension [None]
  - Weight increased [None]

NARRATIVE: CASE EVENT DATE: 20150705
